FAERS Safety Report 23502158 (Version 1)
Quarter: 2024Q1

REPORT INFORMATION
  Report Type: Spontaneous
  Country: CN (occurrence: CN)
  Receive Date: 20240208
  Receipt Date: 20240208
  Transmission Date: 20240409
  Serious: Yes (Other)
  Sender: FDA-Public Use
  Company Number: CN-PFIZER INC-PV202400017189

PATIENT
  Age: 10 Year
  Sex: Male
  Weight: 31 kg

DRUGS (4)
  1. ZITHROMAX [Suspect]
     Active Substance: AZITHROMYCIN DIHYDRATE
     Indication: Pneumonia mycoplasmal
     Dosage: 0.3 G, 1X/DAY
     Route: 048
     Dates: start: 20240201, end: 20240203
  2. AMBROXOL HYDROCHLORIDE\CLENBUTEROL [Suspect]
     Active Substance: AMBROXOL HYDROCHLORIDE\CLENBUTEROL
     Indication: Productive cough
     Dosage: 15 ML, 2X/DAY
     Route: 048
     Dates: start: 20240201, end: 20240201
  3. AMBROXOL HYDROCHLORIDE\CLENBUTEROL [Suspect]
     Active Substance: AMBROXOL HYDROCHLORIDE\CLENBUTEROL
     Indication: Cough
  4. CHEN GONG ZAI XIN [Concomitant]
     Indication: Nasopharyngitis
     Dosage: 0.54 G, 3X/DAY
     Route: 048
     Dates: start: 20240201, end: 20240204

REACTIONS (4)
  - Abdominal pain [Recovering/Resolving]
  - Diarrhoea [Recovering/Resolving]
  - Dysphoria [Recovering/Resolving]
  - Initial insomnia [Recovering/Resolving]

NARRATIVE: CASE EVENT DATE: 20240201
